FAERS Safety Report 7017844-2 (Version None)
Quarter: 2010Q3

REPORT INFORMATION
  Report Type: 
  Country: None (occurrence: None)
  Receive Date: 20100928
  Receipt Date: 20100913
  Transmission Date: 20110219
  Serious: Yes (Hospitalization)
  Sender: FDA-Public Use
  Company Number: US-ELI_LILLY_AND_COMPANY-US201006003882

PATIENT
  Age: 76 Year
  Sex: Female
  Weight: 56.689 kg

DRUGS (2)
  1. EFFIENT [Suspect]
     Indication: CORONARY ARTERY OCCLUSION
     Dosage: 5 MG, DAILY (1/D)
     Dates: start: 20100401, end: 20100501
  2. EFFIENT [Suspect]
     Dosage: 10 MG, DAILY (1/D)
     Dates: start: 20100501

REACTIONS (4)
  - CHEST PAIN [None]
  - DRUG INEFFECTIVE [None]
  - ECCHYMOSIS [None]
  - HAEMORRHOIDAL HAEMORRHAGE [None]
